FAERS Safety Report 5721082-0 (Version None)
Quarter: 2008Q2

REPORT INFORMATION
  Report Type: 
  Country: None (occurrence: None)
  Receive Date: 20080429
  Receipt Date: 20080428
  Transmission Date: 20081010
  Serious: Yes (Other)
  Sender: FDA-Public Use
  Company Number: A0725039A

PATIENT
  Age: 37 Year
  Sex: Female
  Weight: 53.6 kg

DRUGS (2)
  1. ALLI [Suspect]
     Indication: WEIGHT LOSS DIET
     Dates: start: 20080408
  2. NO CONCURRENT MEDICATION [Concomitant]

REACTIONS (3)
  - ANAL HAEMORRHAGE [None]
  - HEADACHE [None]
  - RECTAL DISCHARGE [None]
